FAERS Safety Report 24726366 (Version 2)
Quarter: 2025Q1

REPORT INFORMATION
  Report Type: Spontaneous
  Country: US (occurrence: US)
  Receive Date: 20241212
  Receipt Date: 20250117
  Transmission Date: 20250409
  Serious: No
  Sender: BAUSCH AND LOMB
  Company Number: US-BAUSCHBL-2024BNL001930

PATIENT
  Age: 68 Year
  Sex: Male

DRUGS (3)
  1. MIEBO [Suspect]
     Active Substance: PERFLUOROHEXYLOCTANE
     Indication: Dry eye
     Dosage: 8 DROPS A DAY
     Route: 065
     Dates: start: 2023, end: 202405
  2. MIEBO [Suspect]
     Active Substance: PERFLUOROHEXYLOCTANE
     Route: 065
     Dates: start: 2024, end: 2024
  3. MIEBO [Suspect]
     Active Substance: PERFLUOROHEXYLOCTANE
     Route: 065
     Dates: start: 2024

REACTIONS (11)
  - Burning sensation [Not Recovered/Not Resolved]
  - Erythema of eyelid [Unknown]
  - Ocular hyperaemia [Unknown]
  - Eye pruritus [Unknown]
  - Patient dissatisfaction with treatment [Unknown]
  - Product use issue [Unknown]
  - Product dose omission in error [Unknown]
  - Product distribution issue [Unknown]
  - Product packaging quantity issue [Unknown]
  - Product delivery mechanism issue [Unknown]
  - Circumstance or information capable of leading to medication error [Unknown]
